FAERS Safety Report 16299561 (Version 1)
Quarter: 2019Q2

REPORT INFORMATION
  Report Type: Spontaneous
  Country: FR (occurrence: FR)
  Receive Date: 20190510
  Receipt Date: 20190510
  Transmission Date: 20190711
  Serious: Yes (Hospitalization, Other)
  Sender: FDA-Public Use
  Company Number: FR-AUROBINDO-AUR-APL-2019-024806

PATIENT

DRUGS (2)
  1. SOLUPRED (PREDNISOLONE METASULFOBENZOATE SODIUM) [Suspect]
     Active Substance: PREDNISOLONE SODIUM METAZOATE
     Indication: PRODUCT USED FOR UNKNOWN INDICATION
     Dosage: NON RENSEIGN?E
     Route: 048
     Dates: start: 20190214
  2. KETOPROFEN. [Suspect]
     Active Substance: KETOPROFEN
     Indication: PRODUCT USED FOR UNKNOWN INDICATION
     Dosage: NON RENSEIGN?E
     Route: 048
     Dates: start: 201902

REACTIONS (2)
  - Drug reaction with eosinophilia and systemic symptoms [Recovering/Resolving]
  - Rash erythematous [Recovering/Resolving]

NARRATIVE: CASE EVENT DATE: 20190321
